FAERS Safety Report 4760573-6 (Version None)
Quarter: 2005Q3

REPORT INFORMATION
  Report Type: 
  Country: None (occurrence: None)
  Receive Date: 20050826
  Receipt Date: 20041208
  Transmission Date: 20060218
  Serious: Yes (Death, Other)
  Sender: FDA-Public Use
  Company Number: USA-2004-0017963

PATIENT
  Age: 21 Month
  Sex: Female

DRUGS (1)
  1. OXYCONTIN [Suspect]
     Dosage: 40 MG

REACTIONS (6)
  - DYSPNOEA [None]
  - LOSS OF CONSCIOUSNESS [None]
  - MALAISE [None]
  - OVERDOSE [None]
  - PYREXIA [None]
  - RESPIRATORY ARREST [None]
